FAERS Safety Report 5261075-3 (Version None)
Quarter: 2007Q1

REPORT INFORMATION
  Report Type: 
  Country: None (occurrence: None)
  Receive Date: 20070306
  Receipt Date: 20070213
  Transmission Date: 20070707
  Serious: Yes (Other)
  Sender: FDA-Public Use
  Company Number: GXKR2007GB01684

PATIENT
  Sex: Female

DRUGS (2)
  1. SIMVASTATIN [Suspect]
     Indication: HYPERCHOLESTEROLAEMIA
     Dosage: 40 MG/DAY, ORAL
     Route: 048
  2. DIHYDROCODEINE COMPOUND [Concomitant]

REACTIONS (3)
  - EYE SWELLING [None]
  - RASH MACULO-PAPULAR [None]
  - SWELLING FACE [None]
